FAERS Safety Report 20199294 (Version 1)
Quarter: 2021Q4

REPORT INFORMATION
  Report Type: Spontaneous
  Country: US (occurrence: None)
  Receive Date: 20211216
  Receipt Date: 20211216
  Transmission Date: 20220303
  Serious: Yes (Other)
  Sender: FDA-Public Use
  Company Number: None

PATIENT
  Age: 23 Year
  Sex: Female

DRUGS (1)
  1. MAKENA [Suspect]
     Active Substance: HYDROXYPROGESTERONE CAPROATE
     Indication: Premature labour
     Dosage: FREQUENCY : WEEKLY;?
     Route: 058
     Dates: start: 20211112, end: 20211210

REACTIONS (5)
  - Injection site pain [None]
  - Injection site erythema [None]
  - Injection site pruritus [None]
  - Urticaria [None]
  - Swelling [None]

NARRATIVE: CASE EVENT DATE: 20211215
